FAERS Safety Report 15874074 (Version 1)
Quarter: 2019Q1

REPORT INFORMATION
  Report Type: Other
  Country: US (occurrence: US)
  Receive Date: 20190126
  Receipt Date: 20190126
  Transmission Date: 20190417
  Serious: Yes (Disabling, Other)
  Sender: FDA-Public Use
  Company Number: US-ACORDA-ACO_151153_2018

PATIENT
  Age: 56 Year
  Sex: Female

DRUGS (4)
  1. AMPYRA [Suspect]
     Active Substance: DALFAMPRIDINE
     Indication: PRODUCT USED FOR UNKNOWN INDICATION
     Dosage: UNK
     Route: 065
     Dates: start: 2011
  2. AUBAGIO [Suspect]
     Active Substance: TERIFLUNOMIDE
     Indication: MULTIPLE SCLEROSIS
     Dosage: UNK
     Route: 065
     Dates: start: 201308
  3. COPAXONE [Suspect]
     Active Substance: GLATIRAMER ACETATE
     Indication: PRODUCT USED FOR UNKNOWN INDICATION
     Dosage: UNK
     Route: 065
  4. BETASERON [Suspect]
     Active Substance: INTERFERON BETA-1B
     Indication: PRODUCT USED FOR UNKNOWN INDICATION
     Dosage: UNK
     Route: 065

REACTIONS (20)
  - Liver function test increased [Unknown]
  - Hypoaesthesia [Unknown]
  - Injection site bruising [Unknown]
  - Injection site pain [Unknown]
  - Loss of personal independence in daily activities [Not Recovered/Not Resolved]
  - Therapeutic response unexpected [Unknown]
  - Lipoatrophy [Unknown]
  - Needle fatigue [Unknown]
  - Secondary progressive multiple sclerosis [Unknown]
  - Knee operation [Unknown]
  - Restless legs syndrome [Not Recovered/Not Resolved]
  - Peroneal nerve palsy [Unknown]
  - Malaise [Unknown]
  - Shoulder operation [Unknown]
  - Injection site reaction [Unknown]
  - Tissue injury [Unknown]
  - Fatigue [Unknown]
  - Abdominal pain upper [Unknown]
  - Nerve compression [Unknown]
  - Adverse drug reaction [Unknown]

NARRATIVE: CASE EVENT DATE: 201404
